FAERS Safety Report 10948781 (Version 1)
Quarter: 2015Q1

REPORT INFORMATION
  Report Type: Spontaneous
  Country: US (occurrence: None)
  Receive Date: 20150323
  Receipt Date: 20150323
  Transmission Date: 20150721
  Serious: No
  Sender: FDA-Public Use
  Company Number: None

PATIENT
  Age: 75 Year
  Sex: Male
  Weight: 104.33 kg

DRUGS (4)
  1. ZORVOLEX [Suspect]
     Active Substance: DICLOFENAC
     Indication: ANTIINFLAMMATORY THERAPY
     Dosage: 3 PILLS 3 TIMES DAILY MOUTH
     Route: 048
     Dates: start: 20150112, end: 20150113
  2. CENTRUM SILVER [Concomitant]
     Active Substance: VITAMINS
  3. VOLTAREN [Concomitant]
     Active Substance: DICLOFENAC SODIUM
  4. ATENENOL [Concomitant]

REACTIONS (8)
  - Hypoaesthesia [None]
  - Disturbance in attention [None]
  - Influenza like illness [None]
  - Asthenia [None]
  - Headache [None]
  - Dizziness [None]
  - Sinusitis [None]
  - Fatigue [None]

NARRATIVE: CASE EVENT DATE: 20150113
